FAERS Safety Report 8297080-2 (Version None)
Quarter: 2012Q2

REPORT INFORMATION
  Report Type: 
  Country: None (occurrence: None)
  Receive Date: 20120417
  Receipt Date: 20120417
  Transmission Date: 20120825
  Serious: No
  Sender: FDA-Public Use
  Company Number: None

PATIENT
  Age: 62 Year
  Sex: Male
  Weight: 72.5755 kg

DRUGS (8)
  1. NORVASC [Concomitant]
  2. POTASSIUM CHLORIDE [Concomitant]
  3. RHINOCORT [Concomitant]
  4. ASPIRIN [Concomitant]
  5. VALIUM [Concomitant]
  6. PROCTOCORT [Concomitant]
  7. ATORVASTATIN CALCIUM [Suspect]
     Indication: HYPERLIPIDAEMIA
     Dosage: 40MG QD PO
     Route: 048
     Dates: start: 20111201, end: 20120201
  8. TENORELIC [Concomitant]

REACTIONS (4)
  - BACK PAIN [None]
  - PAIN IN EXTREMITY [None]
  - ABDOMINAL DISCOMFORT [None]
  - ABDOMINAL PAIN UPPER [None]
